FAERS Safety Report 10236855 (Version 3)
Quarter: 2015Q4

REPORT INFORMATION
  Report Type: Spontaneous
  Country: CN (occurrence: CN)
  Receive Date: 20140613
  Receipt Date: 20151202
  Transmission Date: 20160304
  Serious: Yes (Death, Hospitalization, Other)
  Sender: FDA-Public Use
  Company Number: CN-PFIZER INC-2014162245

PATIENT
  Age: 83 Year
  Sex: Male
  Weight: 65 kg

DRUGS (4)
  1. ZYPREXA [Suspect]
     Active Substance: OLANZAPINE
     Indication: EMOTIONAL DISORDER
     Dosage: 2.5 MG, 1X/DAY
     Route: 048
     Dates: start: 20130818, end: 20130911
  2. LIPITOR [Suspect]
     Active Substance: ATORVASTATIN CALCIUM
     Indication: HYPERLIPIDAEMIA
     Dosage: 40 MG, 1X/DAY
     Route: 048
     Dates: start: 20130819, end: 20130917
  3. ZOLOFT [Suspect]
     Active Substance: SERTRALINE HYDROCHLORIDE
     Indication: EMOTIONAL DISORDER
     Dosage: 50 MG, 1X/DAY
     Route: 048
     Dates: start: 20130820, end: 20130911
  4. CLONAZEPAM. [Suspect]
     Active Substance: CLONAZEPAM
     Indication: EMOTIONAL DISORDER
     Dosage: 1 DF, 1X/DAY
     Route: 048
     Dates: start: 20130818, end: 20130821

REACTIONS (2)
  - Somnolence [Recovered/Resolved]
  - Hepatic function abnormal [Fatal]

NARRATIVE: CASE EVENT DATE: 20130822
